FAERS Safety Report 7473409-X (Version None)
Quarter: 2011Q2

REPORT INFORMATION
  Report Type: 
  Country: None (occurrence: None)
  Receive Date: 20110511
  Receipt Date: 20110428
  Transmission Date: 20111010
  Serious: Yes (Hospitalization)
  Sender: FDA-Public Use
  Company Number: PHHY2009JP15887

PATIENT
  Sex: Male
  Weight: 70 kg

DRUGS (5)
  1. DANAZOL [Concomitant]
     Indication: APLASTIC ANAEMIA
     Dosage: 200 MG, UNK
     Route: 048
     Dates: start: 20080812
  2. EXJADE [Suspect]
     Indication: IRON OVERLOAD
     Dosage: 1000 MG, DAILY
     Route: 048
     Dates: start: 20080801, end: 20090707
  3. EXJADE [Suspect]
     Dosage: 1500 MG, DAILY
     Route: 048
     Dates: start: 20090708
  4. NEORAL [Suspect]
     Indication: APLASTIC ANAEMIA
     Dosage: 150 MG, DAILY
     Route: 048
     Dates: start: 20080812, end: 20081202
  5. DESFERAL [Concomitant]
     Route: 030
     Dates: start: 20060905, end: 20080812

REACTIONS (5)
  - BLOOD CREATININE INCREASED [None]
  - PHARYNGITIS [None]
  - FEBRILE NEUTROPENIA [None]
  - UPPER RESPIRATORY TRACT INFECTION [None]
  - SUBCUTANEOUS ABSCESS [None]
